FAERS Safety Report 10250733 (Version 1)
Quarter: 2014Q2

REPORT INFORMATION
  Report Type: Spontaneous
  Country: GB (occurrence: GB)
  Receive Date: 20140620
  Receipt Date: 20140620
  Transmission Date: 20141212
  Serious: Yes (Death, Life-Threatening, Hospitalization)
  Sender: FDA-Public Use
  Company Number: GB-TEVA-488926ISR

PATIENT
  Age: 75 Year
  Sex: Male
  Weight: 59.3 kg

DRUGS (12)
  1. VINCRISTINE [Suspect]
     Indication: NON-HODGKIN^S LYMPHOMA
     Route: 042
     Dates: start: 20111122, end: 20120329
  2. CYCLOPHOSPHAMIDE [Suspect]
     Indication: NON-HODGKIN^S LYMPHOMA
     Route: 042
     Dates: start: 20111122, end: 20120329
  3. INOTUZUMAB OZOGAMICIN [Suspect]
     Indication: NON-HODGKIN^S LYMPHOMA
     Route: 042
     Dates: start: 20111123, end: 20120330
  4. PREDNISONE [Suspect]
     Indication: NON-HODGKIN^S LYMPHOMA
     Route: 048
     Dates: start: 20111122, end: 20120329
  5. RITUXIMAB [Suspect]
     Indication: NON-HODGKIN^S LYMPHOMA
     Route: 042
     Dates: start: 20111122, end: 20120329
  6. CHLORPHENAMINE [Concomitant]
     Indication: PREMEDICATION
     Route: 048
     Dates: start: 20120329
  7. CHLORPHENAMINE [Concomitant]
     Indication: PREMEDICATION
     Route: 048
     Dates: start: 20120330
  8. LANSOPRAZOLE [Concomitant]
     Indication: ADJUVANT THERAPY
     Route: 048
     Dates: start: 20111115
  9. METOCLOPRAMIDE [Concomitant]
     Indication: PROPHYLAXIS OF NAUSEA AND VOMITING
     Dosage: 60 MILLIGRAM DAILY;
     Route: 048
     Dates: start: 20120329
  10. ONDANSETRON [Concomitant]
     Indication: PREMEDICATION
     Route: 048
     Dates: start: 20120329
  11. PARACETAMOL [Concomitant]
     Indication: PREMEDICATION
     Route: 048
     Dates: start: 20120330
  12. PARACETAMOL [Concomitant]
     Indication: PREMEDICATION
     Route: 048
     Dates: start: 20120329

REACTIONS (2)
  - Pneumonia [Fatal]
  - Neutropenia [Not Recovered/Not Resolved]
